FAERS Safety Report 5665017-8 (Version None)
Quarter: 2008Q1

REPORT INFORMATION
  Report Type: 
  Country: None (occurrence: None)
  Receive Date: 20080314
  Receipt Date: 20080305
  Transmission Date: 20080703
  Serious: Yes (Death, Other)
  Sender: FDA-Public Use
  Company Number: JP-PFIZER INC-2008020829

PATIENT
  Age: 66 Year
  Sex: Female

DRUGS (2)
  1. AMLODIN [Suspect]
     Dosage: DAILY DOSE:5MG
     Route: 048
     Dates: start: 20030801, end: 20040701
  2. DRUG, UNSPECIFIED [Suspect]

REACTIONS (3)
  - INTERSTITIAL LUNG DISEASE [None]
  - PANCYTOPENIA [None]
  - PNEUMONIA [None]
